FAERS Safety Report 19349543 (Version 2)
Quarter: 2021Q4

REPORT INFORMATION
  Report Type: Report from Study
  Country: KR (occurrence: KR)
  Receive Date: 20210531
  Receipt Date: 20211101
  Transmission Date: 20220303
  Serious: Yes (Hospitalization)
  Sender: FDA-Public Use
  Company Number: KR-KYOWAKIRIN-2021AKK008986

PATIENT
  Age: 80 Year
  Sex: Female

DRUGS (3)
  1. FILGRASTIM [Suspect]
     Active Substance: FILGRASTIM
     Indication: Product used for unknown indication
     Dosage: 300 UNK
     Route: 065
     Dates: start: 20141203, end: 20141204
  2. ERIBULIN [Concomitant]
     Active Substance: ERIBULIN
     Indication: Product used for unknown indication
     Dosage: 1.9 UNK
     Route: 065
     Dates: start: 20141126
  3. ZIPEPROL [Concomitant]
     Active Substance: ZIPEPROL
     Indication: Product used for unknown indication
     Dosage: 15 UNK
     Route: 065
     Dates: start: 20141204

REACTIONS (1)
  - Haematuria [Recovered/Resolved]

NARRATIVE: CASE EVENT DATE: 20141209
